FAERS Safety Report 5017912-0 (Version None)
Quarter: 2006Q2

REPORT INFORMATION
  Report Type: 
  Country: None (occurrence: None)
  Receive Date: 20060602
  Receipt Date: 20060602
  Transmission Date: 20061013
  Serious: Yes (Other)
  Sender: FDA-Public Use
  Company Number: None

PATIENT
  Age: 14 Month
  Sex: Male
  Weight: 11.3399 kg

DRUGS (1)
  1. VIGAMOX [Suspect]
     Indication: EYE INFECTION
     Dates: start: 20060525, end: 20060526

REACTIONS (6)
  - DYSPHAGIA [None]
  - EAR DISORDER [None]
  - PAIN [None]
  - PYREXIA [None]
  - RASH [None]
  - VOMITING [None]
